FAERS Safety Report 8631225 (Version 2)
Quarter: 2012Q4

REPORT INFORMATION
  Report Type: 
  Country: US (occurrence: US)
  Receive Date: 20120622
  Receipt Date: 20121219
  Transmission Date: 20130627
  Serious: Yes (Other)
  Sender: FDA-Public Use
  Company Number: CHPA2012US012628

PATIENT
  Sex: Male

DRUGS (1)
  1. NODOZ [Suspect]
     Indication: PROPHYLAXIS
     Dosage: 2-3 DF, QD
     Route: 048
     Dates: start: 2009

REACTIONS (9)
  - Myocardial infarction [Unknown]
  - Fall [Recovered/Resolved]
  - Wrist fracture [Not Recovered/Not Resolved]
  - Ligament sprain [Not Recovered/Not Resolved]
  - Head injury [Recovered/Resolved]
  - Off label use [Unknown]
  - Therapeutic response unexpected [Unknown]
  - Incorrect dose administered [Unknown]
  - Incorrect drug administration duration [Unknown]
